FAERS Safety Report 20290217 (Version 1)
Quarter: 2022Q1

REPORT INFORMATION
  Report Type: Spontaneous
  Country: US (occurrence: US)
  Receive Date: 20220104
  Receipt Date: 20220104
  Transmission Date: 20220423
  Serious: Yes (Death, Hospitalization)
  Sender: FDA-Public Use
  Company Number: US-GW PHARMA-202112USGW06411

PATIENT

DRUGS (1)
  1. EPIDIOLEX [Suspect]
     Active Substance: CANNABIDIOL
     Indication: Seizure
     Dosage: 120 MILLIGRAM, BID
     Route: 048
     Dates: start: 20200723

REACTIONS (1)
  - Infusion site extravasation [Fatal]

NARRATIVE: CASE EVENT DATE: 20211125
